FAERS Safety Report 8992960 (Version 2)
Quarter: 2013Q1

REPORT INFORMATION
  Report Type: Spontaneous
  Country: GB (occurrence: GB)
  Receive Date: 20130102
  Receipt Date: 20130104
  Transmission Date: 20140127
  Serious: Yes (Death, Other)
  Sender: FDA-Public Use
  Company Number: PHFR2012GB006422

PATIENT
  Age: 74 Year
  Sex: Male

DRUGS (1)
  1. CLOZARIL [Suspect]
     Indication: SCHIZOPHRENIA
     Dosage: UNK UKN, UNK
     Route: 048
     Dates: start: 20120209, end: 201212

REACTIONS (10)
  - Lung neoplasm malignant [Fatal]
  - Pulmonary mass [Fatal]
  - General physical condition abnormal [Fatal]
  - Sedation [Unknown]
  - Poor venous access [Unknown]
  - Drug intolerance [Unknown]
  - Asthenia [Unknown]
  - Weight decreased [Unknown]
  - White blood cell count increased [Unknown]
  - Neutrophil count increased [Unknown]
